FAERS Safety Report 10700872 (Version 1)
Quarter: 2014Q4

REPORT INFORMATION
  Report Type: Spontaneous
  Country: US (occurrence: None)
  Receive Date: 20141224
  Receipt Date: 20141224
  Transmission Date: 20150529
  Serious: Yes (Other)
  Sender: FDA-Public Use
  Company Number: PHEH2014US003049

PATIENT
  Sex: Female

DRUGS (2)
  1. CLOZARIL [Suspect]
     Active Substance: CLOZAPINE
  2. CHEMOTHERAPEUTICS (NO INGREDIENTS/SUBSTANCES) [Concomitant]

REACTIONS (2)
  - Granulocytopenia [None]
  - Leukopenia [None]
